FAERS Safety Report 9096584 (Version 2)
Quarter: 2013Q1

REPORT INFORMATION
  Report Type: Spontaneous
  Country: PL (occurrence: None)
  Receive Date: 20130125
  Receipt Date: 20130225
  Transmission Date: 20140127
  Serious: Yes (Other)
  Sender: FDA-Public Use
  Company Number: 220123

PATIENT
  Age: 32 Year
  Sex: Male
  Weight: 72 kg

DRUGS (4)
  1. DAIVOBET OINTMENT (DAIVOBET) [Suspect]
     Indication: PSORIASIS
     Dosage: 1 ^FINGER UNIT^
     Dates: start: 20121010, end: 20121107
  2. DAIVOBET OINTMENT (DAIVOBET) [Suspect]
     Indication: DRUG THERAPY
     Dosage: 1 ^FINGER UNIT^
     Dates: start: 20121010, end: 20121107
  3. CALCIPOTRIENE OINTMENT [Suspect]
     Indication: PSORIASIS
     Dosage: 1 ^FINGER UNIT^ ?
     Dates: start: 20121010, end: 20121107
  4. CALCIPOTRIENE OINTMENT [Suspect]
     Indication: DRUG THERAPY
     Dosage: 1 ^FINGER UNIT^ ?
     Dates: start: 20121010, end: 20121107

REACTIONS (2)
  - Leukopenia [None]
  - Lymphopenia [None]
